FAERS Safety Report 14994256 (Version 1)
Quarter: 2018Q2

REPORT INFORMATION
  Report Type: Spontaneous
  Country: DE (occurrence: DE)
  Receive Date: 20180611
  Receipt Date: 20180611
  Transmission Date: 20180711
  Serious: Yes (Hospitalization)
  Sender: FDA-Public Use
  Company Number: DE-TEVA-2018-DE-904650

PATIENT
  Age: 77 Year
  Sex: Female
  Weight: 75 kg

DRUGS (17)
  1. TORASEMID [Concomitant]
     Active Substance: TORSEMIDE
     Dosage: 1-0-0-0, TABLETTEN
     Route: 048
  2. L-THYROX [Concomitant]
     Active Substance: LEVOTHYROXINE SODIUM
     Dosage: 1-0-0-0,
     Route: 048
  3. IMATINIB MESYLATE. [Suspect]
     Active Substance: IMATINIB MESYLATE
     Dosage: 1-0-0-0, TABLETTEN
     Route: 048
  4. DECORTIN [Suspect]
     Active Substance: PREDNISONE
     Dosage: 1-0-0-0, TABLETTEN
     Route: 048
  5. METOPROLOL. [Concomitant]
     Active Substance: METOPROLOL
     Dosage: 1-0-0-0,
     Route: 048
  6. ONDANSETRON [Concomitant]
     Active Substance: ONDANSETRON
     Dosage: 1-0-1-0,
     Route: 048
  7. ASPIRIN. [Concomitant]
     Active Substance: ASPIRIN
     Dosage: 1-0-0-0,
     Route: 048
  8. LAXOBERAL [Suspect]
     Active Substance: SODIUM PICOSULFATE
     Dosage: 0-0-1-0, DROP
     Route: 048
  9. MAGNESIUM VERLA [Concomitant]
     Active Substance: MAGNESIUM
     Dosage: 1-0-0-0, BAG
     Route: 048
  10. CLOPIDOGREL [Concomitant]
     Active Substance: CLOPIDOGREL BISULFATE
     Dosage: , 1-0-0-0,
     Route: 048
  11. MCP [Concomitant]
     Active Substance: METOCLOPRAMIDE HYDROCHLORIDE
     Dosage: 1-1-1-0,
     Route: 048
  12. COTRIM [Concomitant]
     Active Substance: SULFAMETHOXAZOLE\TRIMETHOPRIM
     Dosage: 160|800 MG, BY SCHEME, TABLETS
     Route: 048
  13. ATORVASTATIN [Concomitant]
     Active Substance: ATORVASTATIN
     Dosage: 0-0-1-0, TABLETTEN
     Route: 048
  14. OSTEOTRIOL 0,25MIKROGRAMM [Concomitant]
     Dosage: 0-1-0-0
  15. HCT [Concomitant]
     Active Substance: HYDROCHLOROTHIAZIDE
     Dosage: 1-0-0-0, TABLETTEN
     Route: 048
  16. MELPERON [Concomitant]
     Active Substance: MELPERONE
     Dosage: 5 ML, NEED, JUICE
     Route: 048
  17. FENTANYL. [Concomitant]
     Active Substance: FENTANYL
     Dosage: 75 ?G, BY SCHEME, PLASTER TRANSDERMAL
     Route: 058

REACTIONS (6)
  - Dehydration [Unknown]
  - Fatigue [Unknown]
  - General physical health deterioration [Unknown]
  - Chronic myeloid leukaemia [Unknown]
  - Systemic infection [Unknown]
  - Diarrhoea [Unknown]
